FAERS Safety Report 23857145 (Version 3)
Quarter: 2024Q3

REPORT INFORMATION
  Report Type: Spontaneous
  Country: US (occurrence: US)
  Receive Date: 20240515
  Receipt Date: 20240801
  Transmission Date: 20241017
  Serious: No
  Sender: BRISTOL MYERS SQUIBB
  Company Number: US-BRISTOL-MYERS SQUIBB COMPANY-2024-075197

PATIENT
  Age: 41 Year
  Sex: Female

DRUGS (3)
  1. SPRYCEL [Suspect]
     Active Substance: DASATINIB
     Indication: Chronic myeloid leukaemia
     Route: 048
     Dates: start: 202404
  2. SPRYCEL [Suspect]
     Active Substance: DASATINIB
     Route: 048
     Dates: start: 202404
  3. SPRYCEL [Suspect]
     Active Substance: DASATINIB
     Route: 048
     Dates: start: 202404

REACTIONS (6)
  - Swelling [Unknown]
  - Pyrexia [Unknown]
  - Pain [Unknown]
  - Brain fog [Unknown]
  - Hair colour changes [Unknown]
  - Alopecia [Unknown]

NARRATIVE: CASE EVENT DATE: 20240101
